FAERS Safety Report 7795151-8 (Version None)
Quarter: 2011Q3

REPORT INFORMATION
  Report Type: 
  Country: None (occurrence: None)
  Receive Date: 20110930
  Receipt Date: 20110915
  Transmission Date: 20111222
  Serious: Yes (Death, Hospitalization)
  Sender: FDA-Public Use
  Company Number: 2011MA012358

PATIENT
  Age: 63 Year
  Sex: Male

DRUGS (4)
  1. PYRAZINAMIDE [Suspect]
     Indication: PULMONARY TUBERCULOSIS
     Dosage: 1.5 GRAMS
     Dates: start: 20050218, end: 20050513
  2. ISONIAZID [Suspect]
     Indication: PULMONARY TUBERCULOSIS
     Dosage: 0.4 GRAM
     Dates: start: 20050218, end: 20050519
  3. ETHAMBUTOL HYDROCHLORIDE [Suspect]
     Indication: PULMONARY TUBERCULOSIS
     Dosage: 750 MG
     Dates: start: 20050218, end: 20050519
  4. RIFAMPICIN [Suspect]
     Indication: PULMONARY TUBERCULOSIS
     Dosage: 450 MG
     Dates: start: 20050218, end: 20050513

REACTIONS (4)
  - GAIT DISTURBANCE [None]
  - RASH [None]
  - HEPATITIS FULMINANT [None]
  - DRUG RESISTANCE [None]
